FAERS Safety Report 19372889 (Version 1)
Quarter: 2021Q2

REPORT INFORMATION
  Report Type: Other
  Country: IT (occurrence: IT)
  Receive Date: 20210604
  Receipt Date: 20210604
  Transmission Date: 20210717
  Serious: Yes (Hospitalization)
  Sender: FDA-Public Use
  Company Number: IT-ROCHE-2840876

PATIENT
  Age: 54 Year
  Sex: Male

DRUGS (3)
  1. ENOXAPARIN [Concomitant]
     Active Substance: ENOXAPARIN
     Indication: ANTICOAGULANT THERAPY
     Dosage: 4000 IU, BID
     Route: 058
  2. RITUXIMAB. [Suspect]
     Active Substance: RITUXIMAB
     Indication: FOLLICULAR LYMPHOMA STAGE IV
     Dosage: UNK, CYCLIC (SINGLE CHEMOTHERAPY CYCLE)
     Route: 065
     Dates: start: 202010
  3. METHYLPREDNISOLONE. [Concomitant]
     Active Substance: METHYLPREDNISOLONE
     Indication: PRODUCT USED FOR UNKNOWN INDICATION
     Dosage: 40 MG, BID
     Route: 042

REACTIONS (2)
  - Acute respiratory distress syndrome [Recovered/Resolved]
  - COVID-19 [Recovered/Resolved]
